FAERS Safety Report 15010852 (Version 1)
Quarter: 2018Q2

REPORT INFORMATION
  Report Type: Spontaneous
  Country: US (occurrence: US)
  Receive Date: 20180529
  Receipt Date: 20180529
  Transmission Date: 20180711
  Serious: No
  Sender: FDA-Public Use
  Company Number: None

PATIENT
  Age: 53 Year
  Sex: Female
  Weight: 65.25 kg

DRUGS (1)
  1. TYMLOS [Suspect]
     Active Substance: ABALOPARATIDE
     Indication: OSTEOPOROSIS
     Dosage: ?          QUANTITY:1 MULTI-DOSE PEN;?
     Route: 058
     Dates: start: 20180323, end: 20180528

REACTIONS (10)
  - Anxiety [None]
  - Palpitations [None]
  - Acne [None]
  - Limb discomfort [None]
  - Swelling [None]
  - Alopecia [None]
  - Abdominal distension [None]
  - Pain in extremity [None]
  - Arthralgia [None]
  - Weight increased [None]

NARRATIVE: CASE EVENT DATE: 20180528
